FAERS Safety Report 6443264-5 (Version None)
Quarter: 2009Q4

REPORT INFORMATION
  Report Type: 
  Country: None (occurrence: None)
  Receive Date: 20091117
  Receipt Date: 20091103
  Transmission Date: 20100525
  Serious: Yes (Death)
  Sender: FDA-Public Use
  Company Number: US-SANOFI-AVENTIS-2009SA000794

PATIENT
  Sex: Male

DRUGS (2)
  1. LANTUS [Suspect]
     Indication: TYPE 2 DIABETES MELLITUS
     Route: 058
  2. SOLOSTAR [Suspect]
     Route: 058

REACTIONS (1)
  - DIABETIC COMA [None]
